FAERS Safety Report 24716791 (Version 2)
Quarter: 2025Q1

REPORT INFORMATION
  Report Type: Spontaneous
  Country: JP (occurrence: JP)
  Receive Date: 20241210
  Receipt Date: 20250122
  Transmission Date: 20250408
  Serious: Yes (Hospitalization, Disabling, Other)
  Sender: BRISTOL-MYERS SQUIBB COMPANY
  Company Number: JP-BRISTOL-MYERS SQUIBB COMPANY-2024-190852

PATIENT
  Age: 85 Year
  Sex: Male
  Weight: 61 kg

DRUGS (6)
  1. ELIQUIS [Suspect]
     Active Substance: APIXABAN
     Indication: Cerebrovascular accident prophylaxis
     Route: 048
     Dates: start: 20200925, end: 20240813
  2. ELIQUIS [Suspect]
     Active Substance: APIXABAN
     Indication: Thrombosis prophylaxis
     Dosage: AFTER BREAKFAST AND AFTER DINNER
     Route: 048
     Dates: start: 20240814, end: 20240912
  3. CARVEDILOL [Concomitant]
     Active Substance: CARVEDILOL
     Indication: Atrial fibrillation
     Dosage: AFTER BREAKFAST
     Dates: start: 20201023, end: 20240912
  4. HARNAL [Concomitant]
     Active Substance: TAMSULOSIN HYDROCHLORIDE
     Indication: Benign prostatic hyperplasia
     Dosage: AFTER BREAKFAST
     Route: 048
     Dates: end: 20240912
  5. TADALAFIL [Concomitant]
     Active Substance: TADALAFIL
     Indication: Benign prostatic hyperplasia
     Dosage: AFTER BREAKFAST
     Dates: end: 20240912
  6. MAGNESIUM OXIDE [Concomitant]
     Active Substance: MAGNESIUM OXIDE
     Indication: Constipation
     Dosage: 1 TABLET FOR AFTER LUNCH, 2 TABLETS FOR AFTER DINNER, SELF-ADJUSTMENT WAS ALLOWED
     Dates: start: 20201008, end: 20240912

REACTIONS (9)
  - Thalamus haemorrhage [Recovered/Resolved with Sequelae]
  - Cerebral ventricular rupture [Unknown]
  - Fall [Unknown]
  - Hypertensive emergency [Recovered/Resolved]
  - Tachycardia [Recovered/Resolved]
  - Dysphagia [Not Recovered/Not Resolved]
  - Cerebral amyloid angiopathy [Not Recovered/Not Resolved]
  - Haemangioma [Not Recovered/Not Resolved]
  - Cerebellar haemorrhage [Recovered/Resolved with Sequelae]

NARRATIVE: CASE EVENT DATE: 20240912
